FAERS Safety Report 7222603-1 (Version None)
Quarter: 2011Q1

REPORT INFORMATION
  Report Type: 
  Country: None (occurrence: None)
  Receive Date: 20110103
  Receipt Date: 20101220
  Transmission Date: 20110831
  Serious: Yes (Hospitalization)
  Sender: FDA-Public Use
  Company Number: 019589

PATIENT
  Sex: Female
  Weight: 68 kg

DRUGS (13)
  1. LEVOTHYROXINE SODIUM [Concomitant]
  2. SIMVASTATIN [Concomitant]
  3. CETIRIZINE HCL [Suspect]
  4. VIMPAT [Suspect]
     Indication: EPILEPSY
     Dosage: 150 MG, 50 MG; 150MG ORAL; 150 MG BID
     Route: 048
     Dates: start: 20100719
  5. VIMPAT [Suspect]
     Indication: EPILEPSY
     Dosage: 150 MG, 50 MG; 150MG ORAL; 150 MG BID
     Route: 048
     Dates: start: 20100614, end: 20100705
  6. ASA [Concomitant]
  7. VALPROIC ACID [Concomitant]
  8. BISOPROLOL FUMARATE [Suspect]
  9. MAGNESIUM [Concomitant]
  10. NOVAMINSULFON [Concomitant]
  11. CITALOPRAM HYDROBROMIDE [Concomitant]
  12. OMEPRAZOLE [Concomitant]
  13. AMIODARONE HCL [Concomitant]

REACTIONS (7)
  - ANKLE FRACTURE [None]
  - MYOCARDIAL INFARCTION [None]
  - ATRIAL FIBRILLATION [None]
  - TRICUSPID VALVE INCOMPETENCE [None]
  - RASH [None]
  - VENTRICULAR FIBRILLATION [None]
  - SYNCOPE [None]
